FAERS Safety Report 13852029 (Version 2)
Quarter: 2018Q4

REPORT INFORMATION
  Report Type: Spontaneous
  Country: US (occurrence: US)
  Receive Date: 20170810
  Receipt Date: 20181227
  Transmission Date: 20190204
  Serious: Yes (Other)
  Sender: FDA-Public Use
  Company Number: US-PFIZER INC-2017343087

PATIENT
  Age: 62 Year
  Sex: Male
  Weight: 144.7 kg

DRUGS (15)
  1. GABAPENTIN. [Suspect]
     Active Substance: GABAPENTIN
     Dosage: 600 MG, 3X/DAY
     Route: 048
  2. GABAPENTIN. [Suspect]
     Active Substance: GABAPENTIN
     Indication: DIABETIC NEUROPATHY
     Dosage: 300 MG, 2X/DAY
     Route: 048
  3. GLIMEPIRIDE. [Concomitant]
     Active Substance: GLIMEPIRIDE
     Indication: DIABETES MELLITUS
     Dosage: 4 MG, 2X/DAY
     Route: 048
  4. METFORMIN [Concomitant]
     Active Substance: METFORMIN HYDROCHLORIDE
     Indication: DIABETES MELLITUS
     Dosage: 1000 MG, 2X/DAY
     Route: 048
     Dates: start: 201701
  5. XARELTO [Concomitant]
     Active Substance: RIVAROXABAN
     Indication: ATRIAL FIBRILLATION
     Dosage: 20 MG, 1X/DAY
     Route: 048
     Dates: start: 2015
  6. VITAMIN D /00107901/ [Concomitant]
     Active Substance: ERGOCALCIFEROL
     Dosage: UNK
  7. VITAMIN C [Concomitant]
     Active Substance: ASCORBIC ACID
     Dosage: UNK
  8. FUROSEMIDE. [Concomitant]
     Active Substance: FUROSEMIDE
     Indication: FLUID RETENTION
     Dosage: 40 MG, 1X/DAY
     Route: 048
     Dates: start: 2015
  9. ENTRESTO [Concomitant]
     Active Substance: SACUBITRIL\VALSARTAN
     Indication: CARDIAC DISORDER
     Dosage: [SACUBITRIL 24MG]/[VALSARTAN SODIUM HYDRATE 26MG], 1 DF, 2X/DAY
     Route: 048
     Dates: start: 2015
  10. VIAGRA [Concomitant]
     Active Substance: SILDENAFIL CITRATE
     Dosage: 100 MG, DAILY
     Route: 048
  11. GABAPENTIN. [Suspect]
     Active Substance: GABAPENTIN
     Dosage: 800 MG, 3X/DAY
     Route: 048
  12. CARVIDOL [Concomitant]
     Indication: CARDIAC DISORDER
     Dosage: 6.25 MG, 1X/DAY
     Dates: start: 2015
  13. PAROXETINE. [Concomitant]
     Active Substance: PAROXETINE
     Dosage: 0.5 DF, DAILY
     Route: 048
  14. ALLOPURINOL. [Concomitant]
     Active Substance: ALLOPURINOL
     Indication: GOUT
     Dosage: 100 MG, 3X/DAY
     Route: 048
     Dates: start: 2016
  15. PAROXETINE. [Concomitant]
     Active Substance: PAROXETINE
     Indication: DEPRESSION
     Dosage: 20 MG, 1X/DAY
     Route: 048

REACTIONS (6)
  - Condition aggravated [Unknown]
  - Drug ineffective for unapproved indication [Unknown]
  - Neuropathy peripheral [Unknown]
  - Hypoaesthesia [Unknown]
  - Paraesthesia [Unknown]
  - Insomnia [Unknown]
